FAERS Safety Report 4785462-2 (Version None)
Quarter: 2005Q3

REPORT INFORMATION
  Report Type: 
  Country: None (occurrence: None)
  Receive Date: 20050926
  Receipt Date: 20050915
  Transmission Date: 20060218
  Serious: Yes (Other)
  Sender: FDA-Public Use
  Company Number: HQWYE853111AUG05

PATIENT
  Age: 5 Year
  Sex: Male
  Weight: 20 kg

DRUGS (3)
  1. REFACTO [Suspect]
     Indication: FACTOR VIII DEFICIENCY
     Dosage: 25 UNITS/KG ON DEMAND (520 UNITS AT LAST INFUSION), INTRAVENOUS
     Route: 042
     Dates: start: 20050101, end: 20050620
  2. REFACTO [Suspect]
  3. MULTIVITAMINS AND IRON (MULTIVITAMINS AND IRON) [Concomitant]

REACTIONS (2)
  - ANTI FACTOR VIII ANTIBODY POSITIVE [None]
  - CONTUSION [None]
